FAERS Safety Report 24668796 (Version 1)
Quarter: 2024Q4

REPORT INFORMATION
  Report Type: Spontaneous
  Country: BE (occurrence: BE)
  Receive Date: 20241127
  Receipt Date: 20241127
  Transmission Date: 20250115
  Serious: Yes (Hospitalization, Other)
  Sender: RANBAXY
  Company Number: BE-SUN PHARMACEUTICAL INDUSTRIES LTD-2024R1-480935

PATIENT
  Age: 62 Year
  Sex: Female

DRUGS (5)
  1. CAPECITABINE [Suspect]
     Active Substance: CAPECITABINE
     Indication: Neuroendocrine carcinoma
     Dosage: UNK (625 MG/M2)
     Route: 065
     Dates: start: 202209
  2. TEMOZOLOMIDE [Suspect]
     Active Substance: TEMOZOLOMIDE
     Indication: Neuroendocrine carcinoma
     Dosage: UNK (100 MG/M2)
     Route: 065
     Dates: start: 202209, end: 202306
  3. EVEROLIMUS [Suspect]
     Active Substance: EVEROLIMUS
     Indication: Neuroendocrine carcinoma
     Dosage: 5 MILLIGRAM, DAILY
     Route: 065
     Dates: start: 202211, end: 202306
  4. FLUOROURACIL [Suspect]
     Active Substance: FLUOROURACIL
     Indication: Neuroendocrine carcinoma
     Dosage: UNK (2,400 MG/M2, EVERY 3 WEEKS)
     Route: 065
     Dates: start: 202302, end: 202306
  5. IRINOTECAN [Suspect]
     Active Substance: IRINOTECAN
     Indication: Neuroendocrine carcinoma
     Dosage: UNK (180 MG/M2 EVERY 3 WEEKS)
     Route: 065
     Dates: start: 202302, end: 202306

REACTIONS (6)
  - Condition aggravated [Unknown]
  - Fatigue [Unknown]
  - Abdominal pain [Unknown]
  - Muscular weakness [Unknown]
  - Dyspnoea [Unknown]
  - Cough [Unknown]
